FAERS Safety Report 11458065 (Version 2)
Quarter: 2015Q3

REPORT INFORMATION
  Report Type: Spontaneous
  Country: US (occurrence: US)
  Receive Date: 20150904
  Receipt Date: 20150915
  Transmission Date: 20151125
  Serious: Yes (Other)
  Sender: FDA-Public Use
  Company Number: US-PFIZER INC-2015282573

PATIENT
  Age: 60 Year
  Sex: Female
  Weight: 83 kg

DRUGS (1)
  1. IBRANCE [Suspect]
     Active Substance: PALBOCICLIB
     Indication: BREAST CANCER
     Dosage: 75 MG, CYCLIC (DAY 1-14 EVERY 28 DAYS)
     Route: 048
     Dates: start: 20150410

REACTIONS (4)
  - Headache [Unknown]
  - Blood creatinine increased [Unknown]
  - Alopecia [Unknown]
  - Neutropenia [Not Recovered/Not Resolved]
